FAERS Safety Report 9925300 (Version 1)
Quarter: 2014Q1

REPORT INFORMATION
  Report Type: Spontaneous
  Country: None (occurrence: DE)
  Receive Date: 20140226
  Receipt Date: 20140226
  Transmission Date: 20141002
  Serious: Yes (Hospitalization)
  Sender: FDA-Public Use
  Company Number: DE-EISAI INC-E2080-00693-SPO-DE

PATIENT
  Age: 4 Year
  Sex: Male

DRUGS (4)
  1. INOVELON [Suspect]
     Indication: EPILEPSY
     Dosage: 200MG DAILY
     Route: 048
     Dates: start: 201401, end: 2014
  2. INOVELON [Suspect]
     Dosage: 400MG DAILY
     Route: 048
     Dates: start: 2014, end: 2014
  3. INOVELON [Suspect]
     Dosage: 600MG DAILY
     Route: 048
     Dates: start: 2014, end: 20140218
  4. VALPROIC ACID [Concomitant]
     Indication: EPILEPSY
     Dosage: UNKNOWN
     Route: 065

REACTIONS (1)
  - Pancreatitis [Recovering/Resolving]
